FAERS Safety Report 21098761 (Version 1)
Quarter: 2022Q3

REPORT INFORMATION
  Report Type: Spontaneous
  Country: US (occurrence: None)
  Receive Date: 20220718
  Receipt Date: 20220718
  Transmission Date: 20221027
  Serious: Yes (Death)
  Sender: FDA-Public Use
  Company Number: None

PATIENT
  Age: 47 Year
  Sex: Female

DRUGS (1)
  1. PROMACTA [Suspect]
     Active Substance: ELTROMBOPAG OLAMINE
     Indication: Immune thrombocytopenia
     Dosage: 75MG QD ORAL?
     Route: 048
     Dates: start: 20220518, end: 20220704

REACTIONS (4)
  - Confusional state [None]
  - Status epilepticus [None]
  - Inappropriate antidiuretic hormone secretion [None]
  - Escherichia urinary tract infection [None]

NARRATIVE: CASE EVENT DATE: 20220706
